FAERS Safety Report 12058659 (Version 1)
Quarter: 2016Q1

REPORT INFORMATION
  Report Type: Spontaneous
  Country: US (occurrence: None)
  Receive Date: 20160209
  Receipt Date: 20160209
  Transmission Date: 20160526
  Serious: Yes (Hospitalization)
  Sender: FDA-Public Use
  Company Number: None

PATIENT
  Age: 68 Year
  Sex: Male

DRUGS (4)
  1. ACTHAR [Suspect]
     Active Substance: CORTICOTROPIN
     Indication: SARCOIDOSIS
     Route: 058
     Dates: start: 20150731, end: 20151116
  2. CARDIAZAM [Concomitant]
  3. PREDNISONE. [Suspect]
     Active Substance: PREDNISONE
  4. DITIAZAM [Concomitant]

REACTIONS (1)
  - Malignant hypertension [None]

NARRATIVE: CASE EVENT DATE: 20151121
